FAERS Safety Report 24324725 (Version 1)
Quarter: 2024Q3

REPORT INFORMATION
  Report Type: Spontaneous
  Country: US (occurrence: US)
  Receive Date: 20240916
  Receipt Date: 20240916
  Transmission Date: 20241017
  Serious: No
  Sender: NOVITIUM PHARMA
  Company Number: US-NOVITIUMPHARMA-2024USNVP01858

PATIENT
  Sex: Female

DRUGS (2)
  1. ESTRADIOL [Suspect]
     Active Substance: ESTRADIOL
     Indication: Product used for unknown indication
     Route: 061
     Dates: start: 20240709
  2. ESTRADIOL [Suspect]
     Active Substance: ESTRADIOL
     Route: 061
     Dates: start: 20240801

REACTIONS (1)
  - Drug ineffective [Unknown]
